FAERS Safety Report 16862132 (Version 1)
Quarter: 2019Q3

REPORT INFORMATION
  Report Type: Spontaneous
  Country: IL (occurrence: IL)
  Receive Date: 20190927
  Receipt Date: 20190927
  Transmission Date: 20191005
  Serious: Yes (Other)
  Sender: FDA-Public Use
  Company Number: IL-SEATTLE GENETICS-2019SGN03323

PATIENT
  Age: 18 Year
  Sex: Female

DRUGS (3)
  1. ADCETRIS [Suspect]
     Active Substance: BRENTUXIMAB VEDOTIN
     Indication: HODGKIN^S DISEASE
     Dosage: 1.8 MILLIGRAM/KILOGRAM
     Route: 042
     Dates: start: 201908
  2. ADCETRIS [Suspect]
     Active Substance: BRENTUXIMAB VEDOTIN
     Dosage: 1.2 MILLIGRAM/KILOGRAM
     Route: 042
  3. URSOLIT [Concomitant]
     Dosage: UNK
     Dates: start: 201908

REACTIONS (1)
  - Hepatic steatosis [Recovering/Resolving]

NARRATIVE: CASE EVENT DATE: 201908
